FAERS Safety Report 19027375 (Version 1)
Quarter: 2021Q1

REPORT INFORMATION
  Report Type: Spontaneous
  Country: OM (occurrence: OM)
  Receive Date: 20210318
  Receipt Date: 20210318
  Transmission Date: 20210420
  Serious: Yes (Other)
  Sender: FDA-Public Use
  Company Number: NVSC2021OM057764

PATIENT
  Sex: Male

DRUGS (3)
  1. ALCOHOL. [Suspect]
     Active Substance: ALCOHOL
     Indication: PRODUCT USED FOR UNKNOWN INDICATION
     Dosage: UNK
     Route: 065
  2. PROGUANIL [Suspect]
     Active Substance: PROGUANIL
     Indication: PRODUCT USED FOR UNKNOWN INDICATION
     Dosage: UNK
     Route: 065
  3. PARACETAMOL [Suspect]
     Active Substance: ACETAMINOPHEN
     Indication: PRODUCT USED FOR UNKNOWN INDICATION
     Dosage: UNK
     Route: 065

REACTIONS (20)
  - Respiratory arrest [Unknown]
  - Asthenia [Unknown]
  - Hypotension [Unknown]
  - Overdose [Unknown]
  - Seizure [Unknown]
  - Headache [Unknown]
  - Intentional overdose [Unknown]
  - Metabolic acidosis [Unknown]
  - Defect conduction intraventricular [Unknown]
  - Somnolence [Unknown]
  - Toxicity to various agents [Unknown]
  - Vomiting [Unknown]
  - Hypokalaemia [Unknown]
  - Aggression [Unknown]
  - Dyspnoea [Unknown]
  - General physical health deterioration [Unknown]
  - Nausea [Unknown]
  - Intentional product misuse [Unknown]
  - Confusional state [Unknown]
  - Agitation [Unknown]
